FAERS Safety Report 6332303-8 (Version None)
Quarter: 2009Q3

REPORT INFORMATION
  Report Type: 
  Country: None (occurrence: None)
  Receive Date: 20090828
  Receipt Date: 20090819
  Transmission Date: 20100115
  Serious: Yes (Other)
  Sender: FDA-Public Use
  Company Number: PHHY2009JP35250

PATIENT
  Age: 19 Year
  Sex: Female

DRUGS (5)
  1. TEGRETOL [Suspect]
     Indication: PARTIAL SEIZURES
     Route: 048
  2. PHENOBARBITAL [Concomitant]
     Indication: PARTIAL SEIZURES
     Route: 048
  3. CLOBAZAM [Concomitant]
     Indication: PARTIAL SEIZURES
     Route: 048
  4. ETHOTOIN [Concomitant]
     Indication: PARTIAL SEIZURES
     Route: 048
  5. CLORAZEPATE DIPOTASSIUM [Concomitant]
     Indication: PARTIAL SEIZURES
     Route: 048

REACTIONS (2)
  - CONDITION AGGRAVATED [None]
  - MYOCLONUS [None]
